FAERS Safety Report 7910456-5 (Version None)
Quarter: 2011Q4

REPORT INFORMATION
  Report Type: 
  Country: None (occurrence: None)
  Receive Date: 20111111
  Receipt Date: 20110412
  Transmission Date: 20120403
  Serious: No
  Sender: FDA-Public Use
  Company Number: US-BAYER-2011-071360

PATIENT
  Sex: Female
  Weight: 59 kg

DRUGS (13)
  1. SYNTHROID [Concomitant]
  2. COENZYME Q10 [Concomitant]
  3. PHILLIPS' LAXATIVE DIETARY SUPPLEMENT [Suspect]
     Dosage: 3 DF, ONCE
     Route: 048
     Dates: start: 20110201
  4. AVAPRO [Concomitant]
  5. FISH OIL [Concomitant]
  6. GLUCOSAMINE [Concomitant]
  7. CITRACAL MAXIMUM [Concomitant]
  8. CITRUCEL [Concomitant]
  9. EVISTA [Concomitant]
  10. MULTI-VITAMINS [Concomitant]
  11. LIPITOR [Concomitant]
  12. VITAMIN D [Concomitant]
  13. LECITHIN [Concomitant]

REACTIONS (1)
  - BOWEL MOVEMENT IRREGULARITY [None]
